FAERS Safety Report 15082203 (Version 1)
Quarter: 2018Q2

REPORT INFORMATION
  Report Type: Spontaneous
  Country: US (occurrence: US)
  Receive Date: 20180607
  Receipt Date: 20180607
  Transmission Date: 20180711
  Serious: Yes (Hospitalization)
  Sender: FDA-Public Use
  Company Number: None

PATIENT
  Age: 55 Year
  Sex: Female

DRUGS (8)
  1. FOLIC ACID. [Concomitant]
     Active Substance: FOLIC ACID
  2. METHOTREXATE. [Concomitant]
     Active Substance: METHOTREXATE
  3. MORPHINE [Concomitant]
     Active Substance: MORPHINE
  4. IRON [Concomitant]
     Active Substance: IRON
  5. NEURONTIN [Concomitant]
     Active Substance: GABAPENTIN
  6. MULTI VIT [Concomitant]
  7. SEROQUE [Concomitant]
  8. FORTEO [Suspect]
     Active Substance: TERIPARATIDE
     Indication: RHEUMATOID ARTHRITIS
     Route: 058
     Dates: start: 20161215

REACTIONS (1)
  - Bile duct obstruction [None]

NARRATIVE: CASE EVENT DATE: 20180531
